FAERS Safety Report 4439530-5 (Version None)
Quarter: 2004Q3

REPORT INFORMATION
  Report Type: 
  Country: None (occurrence: None)
  Receive Date: 20040901
  Receipt Date: 20040901
  Transmission Date: 20050211
  Serious: Yes (Hospitalization)
  Sender: FDA-Public Use
  Company Number: None

PATIENT
  Sex: Male
  Weight: 90.7194 kg

DRUGS (1)
  1. VICODIN [Suspect]
     Indication: PAIN
     Dosage: PO
     Route: 048

REACTIONS (5)
  - EYE SWELLING [None]
  - OROPHARYNGEAL SWELLING [None]
  - PAIN [None]
  - RESPIRATORY DISTRESS [None]
  - THROAT IRRITATION [None]
